FAERS Safety Report 4557541-6 (Version None)
Quarter: 2005Q1

REPORT INFORMATION
  Report Type: 
  Country: None (occurrence: None)
  Receive Date: 20050103
  Receipt Date: 20041005
  Transmission Date: 20050727
  Serious: Yes (Other)
  Sender: FDA-Public Use
  Company Number: 2004UW18367

PATIENT
  Age: 54 Year
  Sex: Female
  Weight: 82.1011 kg

DRUGS (33)
  1. CRESTOR [Suspect]
     Indication: BLOOD CHOLESTEROL INCREASED
     Dosage: 10 MG DAILY PO
     Route: 048
     Dates: start: 20031230, end: 20040831
  2. MESTINON [Concomitant]
  3. PATANOL [Concomitant]
  4. SYSTANE [Concomitant]
  5. FOSINOPRIL [Concomitant]
  6. SPIRONOLACTONE W/ HYDROCHLOROTHIAZIDE [Concomitant]
  7. VERAPAMIL [Concomitant]
  8. NEXIUM [Concomitant]
  9. SINGULAIR [Concomitant]
  10. ZYRTEC [Concomitant]
  11. ADVAIR DISKUS 100/50 [Concomitant]
  12. DETROL [Concomitant]
  13. VIVELLE [Concomitant]
  14. VAGIFEN [Concomitant]
  15. ALBUTEROL SULFATE W/IPRATROPIUM BROMIDE [Concomitant]
  16. ELIDEL [Concomitant]
  17. PATANOL [Concomitant]
  18. BENZAMYCIN [Concomitant]
  19. LACRI-LUBE [Concomitant]
  20. COMBIVENT [Concomitant]
  21. VITAMIN C [Concomitant]
  22. VITAMIN E [Concomitant]
  23. ASPIRIN [Concomitant]
  24. OMEGA 3 [Concomitant]
  25. CALMAG D [Concomitant]
  26. MULTI-VITAMINS [Concomitant]
  27. GLUCOSAMINE [Concomitant]
  28. FOLIC ACID [Concomitant]
  29. LUTEIN [Concomitant]
  30. LYCOPENE [Concomitant]
  31. VITAMIN D [Concomitant]
  32. CALCIUM GLUCONATE [Concomitant]
  33. MAGNESIUM [Concomitant]

REACTIONS (5)
  - FATIGUE [None]
  - MUSCULAR WEAKNESS [None]
  - MYALGIA [None]
  - MYASTHENIA GRAVIS [None]
  - OCULAR MYASTHENIA [None]
